FAERS Safety Report 8332995-8 (Version None)
Quarter: 2012Q2

REPORT INFORMATION
  Report Type: 
  Country: None (occurrence: None)
  Receive Date: 20120503
  Receipt Date: 20120425
  Transmission Date: 20120825
  Serious: Yes (Hospitalization)
  Sender: FDA-Public Use
  Company Number: PHHO2012FI006452

PATIENT
  Age: 50 Year
  Sex: Male
  Weight: 98 kg

DRUGS (4)
  1. SIROLIMUS [Concomitant]
     Indication: PROPHYLAXIS
     Dosage: 2 MG, QD
     Route: 048
     Dates: start: 20070402, end: 20120201
  2. CYCLOSPORINE [Suspect]
     Indication: IMMUNOSUPPRESSION
     Dosage: UNK
     Dates: start: 20110618, end: 20110913
  3. CYCLOSPORINE [Suspect]
     Dosage: UNK
     Dates: start: 20120201
  4. ENOXAPARIN [Concomitant]
     Dosage: UNK
     Dates: start: 20110618

REACTIONS (1)
  - ABDOMINAL HERNIA [None]
